FAERS Safety Report 5056062-4 (Version None)
Quarter: 2006Q2

REPORT INFORMATION
  Report Type: 
  Country: None (occurrence: None)
  Receive Date: 20060616
  Receipt Date: 20060407
  Transmission Date: 20061013
  Serious: No
  Sender: FDA-Public Use
  Company Number: 2006US000280

PATIENT
  Age: 47 Year
  Sex: Female

DRUGS (6)
  1. VESICARE [Suspect]
     Indication: BLADDER SPASM
     Dosage: 5 MG,UID/QD,ORAL
     Route: 048
     Dates: start: 20060125, end: 20060201
  2. VESICARE [Suspect]
     Indication: BLADDER SPASM
     Dosage: 5 MG,UID/QD,ORAL
     Route: 048
     Dates: start: 20060201
  3. ELIMIRON (PENTOSAN POLYSULFATE SODIUM) [Concomitant]
  4. HORMONES AND RELATED AGENTS [Concomitant]
  5. VITAMINS [Concomitant]
  6. DETROL [Concomitant]

REACTIONS (4)
  - CONSTIPATION [None]
  - DIZZINESS [None]
  - HEADACHE [None]
  - VISION BLURRED [None]
